FAERS Safety Report 5299136-5 (Version None)
Quarter: 2007Q2

REPORT INFORMATION
  Report Type: 
  Country: None (occurrence: None)
  Receive Date: 20070411
  Receipt Date: 20070411
  Transmission Date: 20071010
  Serious: Yes (Other)
  Sender: FDA-Public Use
  Company Number: None

PATIENT
  Age: 47 Year
  Sex: Male
  Weight: 98 kg

DRUGS (2)
  1. PARICALCITOL [Suspect]
     Indication: HYPERPARATHYROIDISM
     Dosage: 12MCG, 12MCG TIW, INTRAVEN
     Route: 042
     Dates: start: 20061219, end: 20070302
  2. PARICALCITOL [Suspect]
     Indication: RENAL FAILURE CHRONIC
     Dosage: 12MCG, 12MCG TIW, INTRAVEN
     Route: 042
     Dates: start: 20061219, end: 20070302

REACTIONS (2)
  - CHEST PAIN [None]
  - HYPERTENSION [None]
